FAERS Safety Report 24767343 (Version 1)
Quarter: 2024Q4

REPORT INFORMATION
  Report Type: Spontaneous
  Country: GB (occurrence: GB)
  Receive Date: 20241223
  Receipt Date: 20241223
  Transmission Date: 20250115
  Serious: Yes (Other)
  Sender: MYLAN
  Company Number: GB-MYLANLABS-2024M1114210

PATIENT
  Sex: Male

DRUGS (1)
  1. CLOZARIL [Suspect]
     Active Substance: CLOZAPINE
     Indication: Schizophrenia
     Dosage: 175 MILLIGRAM, PM (175 MG AT NIGHT)
     Route: 048
     Dates: start: 20140529

REACTIONS (3)
  - Schizophrenia [Unknown]
  - Product dose omission issue [Unknown]
  - Intentional product misuse [Unknown]
